FAERS Safety Report 20523900 (Version 1)
Quarter: 2022Q1

REPORT INFORMATION
  Report Type: Report from Study
  Country: US (occurrence: US)
  Receive Date: 20220228
  Receipt Date: 20220228
  Transmission Date: 20220423
  Serious: Yes (Hospitalization)
  Sender: FDA-Public Use
  Company Number: US-BRISTOL-MYERS SQUIBB COMPANY-BMS-2022-026534

PATIENT
  Age: 70 Year
  Sex: Male
  Weight: 74 kg

DRUGS (3)
  1. NIVOLUMAB [Suspect]
     Active Substance: NIVOLUMAB
     Indication: Oesophageal adenocarcinoma
     Dosage: 480 MILLIGRAM
     Route: 042
     Dates: start: 20211206, end: 20211220
  2. CARBOPLATIN [Suspect]
     Active Substance: CARBOPLATIN
     Indication: Oesophageal adenocarcinoma
     Dosage: 1280 MILLIGRAM
     Route: 042
     Dates: start: 20211206, end: 20220103
  3. PACLITAXEL [Suspect]
     Active Substance: PACLITAXEL
     Indication: Oesophageal adenocarcinoma
     Dosage: 510 MILLIGRAM
     Route: 042
     Dates: start: 20211206, end: 20220103

REACTIONS (1)
  - Gastrointestinal tube insertion [Recovering/Resolving]

NARRATIVE: CASE EVENT DATE: 20220201
